FAERS Safety Report 25736792 (Version 3)
Quarter: 2025Q4

REPORT INFORMATION
  Report Type: Spontaneous
  Country: US (occurrence: US)
  Receive Date: 20250828
  Receipt Date: 20251020
  Transmission Date: 20260118
  Serious: Yes (Hospitalization)
  Sender: ELI LILLY AND COMPANY
  Company Number: US-ELI_LILLY_AND_COMPANY-US202508025507

PATIENT
  Age: 55 Year
  Sex: Female

DRUGS (2)
  1. VERZENIO [Suspect]
     Active Substance: ABEMACICLIB
     Indication: Breast cancer
     Dosage: 150 MG, BID
     Route: 065
     Dates: start: 20250804, end: 20250812
  2. VERZENIO [Suspect]
     Active Substance: ABEMACICLIB
     Dosage: UNK UNK, UNKNOWN
     Route: 065
     Dates: start: 20250910

REACTIONS (2)
  - Sepsis [Unknown]
  - Urinary tract infection [Unknown]

NARRATIVE: CASE EVENT DATE: 20250101
